FAERS Safety Report 6703796-9 (Version None)
Quarter: 2010Q2

REPORT INFORMATION
  Report Type: 
  Country: None (occurrence: None)
  Receive Date: 20100430
  Receipt Date: 20100423
  Transmission Date: 20101027
  Serious: Yes (Hospitalization)
  Sender: FDA-Public Use
  Company Number: SG-ROCHE-665578

PATIENT
  Sex: Female
  Weight: 80.8 kg

DRUGS (15)
  1. TOCILIZUMAB [Suspect]
     Indication: RHEUMATOID ARTHRITIS
     Dosage: FORM: VIAL. DOSE: 32.32 M/S.
     Route: 042
     Dates: start: 20051215
  2. TOCILIZUMAB [Suspect]
     Dosage: DOSE REPORTED AS 32.96 M/S
     Route: 042
     Dates: start: 20090723
  3. TOCILIZUMAB [Suspect]
     Dosage: DOSE REPORTED AS 33.32 M/S.
     Route: 042
     Dates: start: 20090820
  4. TOCILIZUMAB [Suspect]
     Dosage: DOSE REPORTED AS 33.64 M/S
     Route: 042
     Dates: start: 20090917
  5. TOCILIZUMAB [Suspect]
     Dosage: DRUG TEMPORARILY INTERRUPTED. DOSE REPORTED AS 32.32 M/S
     Route: 042
     Dates: start: 20091014, end: 20091023
  6. TOCILIZUMAB [Suspect]
     Route: 042
     Dates: end: 20091112
  7. PLACEBO [Suspect]
     Indication: RHEUMATOID ARTHRITIS
     Dosage: FORM: INFUSION SOLUTION.
     Route: 042
  8. METHOTREXATE [Suspect]
     Indication: DRUG USE FOR UNKNOWN INDICATION
     Route: 065
     Dates: start: 20081211, end: 20091029
  9. SULPHASALAZINE [Suspect]
     Indication: DRUG USE FOR UNKNOWN INDICATION
     Route: 065
     Dates: start: 20090820
  10. FOLATE/THIAMINE [Concomitant]
  11. NORVASC [Concomitant]
  12. PREDNISOLONE [Concomitant]
     Dates: start: 20081118
  13. ZOCOR [Concomitant]
     Dates: start: 20080515
  14. FOSAMAX [Concomitant]
     Dates: start: 20000310
  15. CAL D [Concomitant]
     Dosage: 2 TABLETS/ DAY.  DRUG: CALCIUM VITAMIN D.

REACTIONS (1)
  - TUBERCULOUS PLEURISY [None]
